FAERS Safety Report 25953095 (Version 1)
Quarter: 2025Q4

REPORT INFORMATION
  Report Type: Spontaneous
  Country: CN (occurrence: CN)
  Receive Date: 20251023
  Receipt Date: 20251023
  Transmission Date: 20260117
  Serious: Yes (Death)
  Sender: FRESENIUS KABI
  Company Number: CN-FreseniusKabi-FK202514135

PATIENT
  Age: 86 Year
  Sex: Male
  Weight: 69 kg

DRUGS (7)
  1. PROPOFOL [Suspect]
     Active Substance: PROPOFOL
     Indication: Induction of anaesthesia
     Dosage: FOA: INJECTION?ROA: INTRAVENOUS INJECTION
     Dates: start: 20251017, end: 20251017
  2. SEVOFLURANE [Suspect]
     Active Substance: SEVOFLURANE
     Indication: Maintenance of anaesthesia
     Dosage: FOA: INHALANT?ROA: INHALATION ADMINISTRATION
     Dates: start: 20251017, end: 20251017
  3. DEXAMETHASONE SODIUM PHOSPHATE [Suspect]
     Active Substance: DEXAMETHASONE SODIUM PHOSPHATE
     Indication: Induction of anaesthesia
     Dosage: FOA: INJECTION?ROA: INTRAVENOUS INJECTION
     Dates: start: 20251017, end: 20251017
  4. SUFENTANIL CITRATE [Suspect]
     Active Substance: SUFENTANIL CITRATE
     Indication: Induction of anaesthesia
     Dosage: FOA: INJECTION?ROA: INTRAVENOUS INJECTION
     Dates: start: 20251017, end: 20251017
  5. CEFUROXIME SODIUM [Suspect]
     Active Substance: CEFUROXIME SODIUM
     Indication: Anti-infective therapy
     Dosage: FOA: INJECTION
     Route: 041
     Dates: start: 20251017, end: 20251017
  6. ROCURONIUM BROMIDE [Suspect]
     Active Substance: ROCURONIUM BROMIDE
     Indication: Induction of anaesthesia
     Dosage: FOA: INJECTION?ROA: INTRAVENOUS INJECTION
     Dates: start: 20251017, end: 20251017
  7. SODIUM CHLORIDE [Concomitant]
     Active Substance: SODIUM CHLORIDE
     Indication: Vehicle solution use
     Dosage: FOA: INJECTION
     Route: 041
     Dates: start: 20251017, end: 20251017

REACTIONS (1)
  - Anaphylactic shock [Fatal]

NARRATIVE: CASE EVENT DATE: 20251017
